FAERS Safety Report 7285337-3 (Version None)
Quarter: 2011Q1

REPORT INFORMATION
  Report Type: 
  Country: None (occurrence: None)
  Receive Date: 20110121
  Receipt Date: 20100512
  Transmission Date: 20110831
  Serious: No
  Sender: FDA-Public Use
  Company Number: AE 2010-046

PATIENT
  Sex: Female
  Weight: 82.1011 kg

DRUGS (9)
  1. BENZTROPINE MESYLATE [Concomitant]
  2. LITHIUM [Concomitant]
  3. ZYPREXA [Concomitant]
  4. FAZACLO ODT [Suspect]
     Indication: SCHIZOAFFECTIVE DISORDER BIPOLAR TYPE
     Dosage: 200MG PO DAILY AT HS
     Route: 048
     Dates: start: 20081006
  5. CENTRUM SILVER [Concomitant]
  6. PAROXETINE HCL [Concomitant]
  7. AMITIZA [Concomitant]
  8. NEXIUM [Concomitant]
  9. PROPRANOLOL [Concomitant]

REACTIONS (3)
  - VOMITING [None]
  - DYSPNOEA [None]
  - CONSTIPATION [None]
